FAERS Safety Report 17679797 (Version 7)
Quarter: 2023Q2

REPORT INFORMATION
  Report Type: Report from Study
  Country: US (occurrence: US)
  Receive Date: 20200417
  Receipt Date: 20230623
  Transmission Date: 20230722
  Serious: No
  Sender: FDA-Public Use
  Company Number: NVSC2020US101412

PATIENT
  Age: 74 Year
  Sex: Female
  Weight: 50.34 kg

DRUGS (10)
  1. TREPROSTINIL [Suspect]
     Active Substance: TREPROSTINIL
     Indication: Pulmonary arterial hypertension
     Dosage: 10 MILLIGRAM PER MILLILITRE
     Route: 042
     Dates: start: 20200109
  2. TREPROSTINIL [Suspect]
     Active Substance: TREPROSTINIL
     Dosage: UNK
     Route: 065
  3. TREPROSTINIL [Suspect]
     Active Substance: TREPROSTINIL
     Dosage: 10 MILLIGRAM PER MILLILITRE, CONT
     Route: 042
     Dates: start: 20200109
  4. TREPROSTINIL [Suspect]
     Active Substance: TREPROSTINIL
     Dosage: 234 NG/KG/MIN, CONT
     Route: 042
     Dates: start: 20200109
  5. TREPROSTINIL [Suspect]
     Active Substance: TREPROSTINIL
     Dosage: 234 NG/KG/MIN, CONT
     Route: 042
     Dates: start: 20200109
  6. TREPROSTINIL [Suspect]
     Active Substance: TREPROSTINIL
     Dosage: UNK
     Route: 065
     Dates: start: 2000
  7. ELIQUIS [Suspect]
     Active Substance: APIXABAN
     Indication: Product used for unknown indication
     Dosage: UNK
     Route: 065
  8. SILDENAFIL CITRATE [Concomitant]
     Active Substance: SILDENAFIL CITRATE
     Indication: Product used for unknown indication
     Dosage: UNK
     Route: 065
     Dates: start: 202304
  9. SILDENAFIL CITRATE [Concomitant]
     Active Substance: SILDENAFIL CITRATE
     Dosage: UNK
     Route: 065
     Dates: start: 202207
  10. FLOLAN [Concomitant]
     Active Substance: EPOPROSTENOL SODIUM
     Indication: Product used for unknown indication
     Route: 065

REACTIONS (8)
  - Cerebral disorder [Unknown]
  - Malaise [Unknown]
  - Headache [Unknown]
  - Pain in extremity [Unknown]
  - Chest pain [Unknown]
  - Asthenia [Unknown]
  - Dizziness [Unknown]
  - Diarrhoea [Unknown]

NARRATIVE: CASE EVENT DATE: 20220601
